FAERS Safety Report 15308732 (Version 1)
Quarter: 2018Q3

REPORT INFORMATION
  Report Type: Report from Study
  Country: CA (occurrence: CA)
  Receive Date: 20180822
  Receipt Date: 20180822
  Transmission Date: 20181010
  Serious: Yes (Other)
  Sender: FDA-Public Use
  Company Number: CA-BEH-2018094045

PATIENT
  Age: 60 Year
  Sex: Female

DRUGS (11)
  1. LYRICA [Concomitant]
     Active Substance: PREGABALIN
  2. INSULIN [Concomitant]
     Active Substance: INSULIN NOS
  3. HIZENTRA [Suspect]
     Active Substance: HUMAN IMMUNOGLOBULIN G
     Indication: CHRONIC INFLAMMATORY DEMYELINATING POLYRADICULONEUROPATHY
     Dosage: 15 G, BIW
     Route: 058
     Dates: start: 20180219
  4. AERIUS                             /01009701/ [Concomitant]
     Active Substance: EBASTINE
  5. AVAMYS [Concomitant]
     Active Substance: FLUTICASONE FUROATE
  6. ALLOPURINOL. [Concomitant]
     Active Substance: ALLOPURINOL
  7. POTASSIUM CITRATE. [Concomitant]
     Active Substance: POTASSIUM CITRATE
  8. MAGNESIUM [Concomitant]
     Active Substance: MAGNESIUM
  9. DIOVAN [Concomitant]
     Active Substance: VALSARTAN
  10. LIPITOR [Concomitant]
     Active Substance: ATORVASTATIN CALCIUM
  11. VICTOZA [Concomitant]
     Active Substance: LIRAGLUTIDE

REACTIONS (4)
  - Pain [Unknown]
  - Dizziness [Unknown]
  - Pupils unequal [Unknown]
  - Ill-defined disorder [Unknown]

NARRATIVE: CASE EVENT DATE: 20180817
